FAERS Safety Report 10633914 (Version 1)
Quarter: 2014Q4

REPORT INFORMATION
  Report Type: Spontaneous
  Country: US (occurrence: None)
  Receive Date: 20141203
  Receipt Date: 20141203
  Transmission Date: 20150529
  Serious: Yes (Death)
  Sender: FDA-Public Use
  Company Number: None

PATIENT
  Age: 62 Year
  Sex: Male
  Weight: 139 kg

DRUGS (5)
  1. ZOCOR [Concomitant]
     Active Substance: SIMVASTATIN
  2. LANTUS [Concomitant]
     Active Substance: INSULIN GLARGINE
  3. SITAGLIPTIN [Suspect]
     Active Substance: SITAGLIPTIN
     Indication: DIABETES MELLITUS
     Route: 048
     Dates: start: 20130815, end: 20131120
  4. ASPIRIN. [Concomitant]
     Active Substance: ASPIRIN
  5. SITAGLIPTIN [Concomitant]
     Active Substance: SITAGLIPTIN

REACTIONS (1)
  - Chronic hepatic failure [None]

NARRATIVE: CASE EVENT DATE: 20131116
